FAERS Safety Report 10276086 (Version 2)
Quarter: 2014Q3

REPORT INFORMATION
  Report Type: Spontaneous
  Country: US (occurrence: US)
  Receive Date: 20140703
  Receipt Date: 20140926
  Transmission Date: 20150326
  Serious: Yes (Life-Threatening, Hospitalization, Other)
  Sender: FDA-Public Use
  Company Number: US-JNJFOC-20140617155

PATIENT

DRUGS (2)
  1. SUDAFED PE PRESSURE PLUS PAIN [Suspect]
     Active Substance: ACETAMINOPHEN\PHENYLEPHRINE HYDROCHLORIDE
     Indication: SINUS CONGESTION
     Dosage: AS DIRECTED
     Route: 065
  2. SUDAFED PE PRESSURE PLUS PAIN [Suspect]
     Active Substance: ACETAMINOPHEN\PHENYLEPHRINE HYDROCHLORIDE
     Indication: HYPERSENSITIVITY
     Dosage: AS DIRECTED
     Route: 065

REACTIONS (2)
  - Product label issue [Unknown]
  - Rhabdomyolysis [Unknown]
